FAERS Safety Report 8326118-9 (Version None)
Quarter: 2012Q2

REPORT INFORMATION
  Report Type: 
  Country: None (occurrence: None)
  Receive Date: 20120501
  Receipt Date: 20120426
  Transmission Date: 20120825
  Serious: No
  Sender: FDA-Public Use
  Company Number: US-PFIZER INC-2012104718

PATIENT
  Sex: Female

DRUGS (1)
  1. CELECOXIB [Suspect]
     Dosage: UNK

REACTIONS (1)
  - DYSPEPSIA [None]
